FAERS Safety Report 8150332-9 (Version None)
Quarter: 2012Q1

REPORT INFORMATION
  Report Type: 
  Country: None (occurrence: None)
  Receive Date: 20120220
  Receipt Date: 20120210
  Transmission Date: 20120608
  Serious: Yes (Hospitalization, Other)
  Sender: FDA-Public Use
  Company Number: US-BAYER-2011-021664

PATIENT
  Age: 43 Year
  Sex: Female
  Weight: 116.78 kg

DRUGS (10)
  1. SYNTHROID [Concomitant]
     Indication: HYPOTHYROIDISM
     Dosage: 25 ?G, QD
     Route: 048
  2. ATENOLOL [Concomitant]
  3. PROTONIX [Concomitant]
  4. ASPIRIN [Concomitant]
     Indication: UNEVALUABLE EVENT
     Dosage: 81 MG, QD
     Route: 048
  5. HYDROCHLOROTHIAZIDE [Concomitant]
     Indication: HYPERTENSION
     Dosage: UNK UNK, QD
     Route: 048
  6. ANAPRIL [Concomitant]
     Indication: HYPERTENSION
     Dosage: UNK UNK, QD
     Route: 048
  7. PROVERA [Concomitant]
  8. YASMIN [Suspect]
     Indication: HAEMORRHAGE
     Dosage: 3 MG, QD
     Route: 048
     Dates: start: 20030101, end: 20051001
  9. IBUPROFEN (ADVIL) [Concomitant]
  10. TENORMIN [Concomitant]

REACTIONS (4)
  - THROMBOSIS [None]
  - INJURY [None]
  - PULMONARY EMBOLISM [None]
  - INTRACARDIAC THROMBUS [None]
